FAERS Safety Report 6248657-7 (Version None)
Quarter: 2009Q2

REPORT INFORMATION
  Report Type: 
  Country: None (occurrence: None)
  Receive Date: 20090625
  Receipt Date: 20081211
  Transmission Date: 20091009
  Serious: Yes (Hospitalization)
  Sender: FDA-Public Use
  Company Number: FPI-08-TEV-0319

PATIENT
  Age: 14 Year
  Sex: Male
  Weight: 56 kg

DRUGS (2)
  1. TEV-TROPIN [Suspect]
     Indication: DWARFISM
     Dosage: 3MG X 6 DAYS SQ
     Dates: start: 20081120, end: 20081204
  2. ADDERALL 10 [Concomitant]

REACTIONS (3)
  - HEADACHE [None]
  - NAUSEA [None]
  - VOMITING [None]
